FAERS Safety Report 17427881 (Version 1)
Quarter: 2020Q1

REPORT INFORMATION
  Report Type: Spontaneous
  Country: US (occurrence: US)
  Receive Date: 20200218
  Receipt Date: 20200218
  Transmission Date: 20200409
  Serious: Yes (Other)
  Sender: FDA-Public Use
  Company Number: NVSC2020US041953

PATIENT
  Age: 57 Year
  Sex: Male

DRUGS (4)
  1. GLECAPREVIR [Concomitant]
     Active Substance: GLECAPREVIR
     Indication: PRODUCT USED FOR UNKNOWN INDICATION
     Dosage: UNK
     Route: 065
  2. DEXAMETHASONE. [Suspect]
     Active Substance: DEXAMETHASONE
     Indication: MARGINAL ZONE LYMPHOMA
     Dosage: UNK
     Route: 065
  3. PIBRENTASVIR [Concomitant]
     Active Substance: PIBRENTASVIR
     Indication: PRODUCT USED FOR UNKNOWN INDICATION
     Dosage: UNK
     Route: 065
  4. RITUXIMAB. [Suspect]
     Active Substance: RITUXIMAB
     Indication: MARGINAL ZONE LYMPHOMA
     Dosage: UNK
     Route: 065

REACTIONS (4)
  - Glomerulonephritis minimal lesion [Unknown]
  - Neuropathy peripheral [Unknown]
  - Hepatitis C [Unknown]
  - Renal failure [Unknown]
